FAERS Safety Report 10642453 (Version 1)
Quarter: 2014Q4

REPORT INFORMATION
  Report Type: Spontaneous
  Country: US (occurrence: None)
  Receive Date: 20141208
  Receipt Date: 20141208
  Transmission Date: 20150529
  Serious: Yes (Hospitalization)
  Sender: FDA-Public Use
  Company Number: IPC201411-000645

PATIENT
  Age: 11 Year
  Sex: Female

DRUGS (1)
  1. CETIRIZINE [Suspect]
     Active Substance: CETIRIZINE HYDROCHLORIDE

REACTIONS (4)
  - Neutrophilia [None]
  - Malaise [None]
  - Acute generalised exanthematous pustulosis [None]
  - Vomiting [None]
